FAERS Safety Report 7520395-X (Version None)
Quarter: 2011Q2

REPORT INFORMATION
  Report Type: 
  Country: None (occurrence: None)
  Receive Date: 20110602
  Receipt Date: 20110523
  Transmission Date: 20111010
  Serious: Yes (Hospitalization, Other)
  Sender: FDA-Public Use
  Company Number: US-BAYER-2011-044247

PATIENT
  Sex: Female

DRUGS (2)
  1. DROSPERINONE/ETHINYL ESTRADIOL [Suspect]
  2. YAZ [Suspect]
     Indication: DYSMENORRHOEA
     Dosage: UNK
     Dates: start: 20070116

REACTIONS (19)
  - ABDOMINAL DISTENSION [None]
  - DYSPEPSIA [None]
  - THIRST [None]
  - ARTHRALGIA [None]
  - DIZZINESS [None]
  - DIARRHOEA [None]
  - NAUSEA [None]
  - HEADACHE [None]
  - DRY MOUTH [None]
  - ABDOMINAL DISCOMFORT [None]
  - DYSSTASIA [None]
  - SPEECH DISORDER [None]
  - DRY SKIN [None]
  - PERIPHERAL COLDNESS [None]
  - INSOMNIA [None]
  - NECK PAIN [None]
  - GASTROOESOPHAGEAL REFLUX DISEASE [None]
  - ABDOMINAL PAIN UPPER [None]
  - GAIT DISTURBANCE [None]
